FAERS Safety Report 7140393-8 (Version None)
Quarter: 2010Q4

REPORT INFORMATION
  Report Type: 
  Country: None (occurrence: None)
  Receive Date: 20101207
  Receipt Date: 20101129
  Transmission Date: 20110411
  Serious: No
  Sender: FDA-Public Use
  Company Number: US-BIOGENIDEC-2010BI042189

PATIENT
  Sex: Female

DRUGS (2)
  1. TYSABRI [Suspect]
     Indication: MULTIPLE SCLEROSIS
     Route: 042
     Dates: start: 20100831
  2. TYSABRI [Suspect]
     Route: 042
     Dates: start: 20050222, end: 20050222

REACTIONS (2)
  - DYSKINESIA [None]
  - HOT FLUSH [None]
